FAERS Safety Report 21905911 (Version 4)
Quarter: 2024Q1

REPORT INFORMATION
  Report Type: Report from Study
  Country: US (occurrence: US)
  Receive Date: 20230124
  Receipt Date: 20240325
  Transmission Date: 20240410
  Serious: Yes (Hospitalization, Other)
  Sender: FDA-Public Use
  Company Number: US-GILEAD-2023-0614018

PATIENT
  Sex: Male

DRUGS (30)
  1. AZTREONAM LYSINE [Suspect]
     Active Substance: AZTREONAM LYSINE
     Indication: Illness
     Dosage: 1 DOSAGE FORM, TID (ILLNESS UNSPECIFIED)
     Route: 055
     Dates: start: 20230314
  2. AZTREONAM LYSINE [Suspect]
     Active Substance: AZTREONAM LYSINE
     Indication: Bacterial infection
     Dosage: 75 MG, 28 DAYS ON AND 28 DAYS OFF 84 VIALS
     Route: 065
  3. AZTREONAM LYSINE [Suspect]
     Active Substance: AZTREONAM LYSINE
     Indication: Pseudomonas infection
  4. AZTREONAM LYSINE [Suspect]
     Active Substance: AZTREONAM LYSINE
     Indication: Bronchiectasis
  5. AZTREONAM LYSINE [Suspect]
     Active Substance: AZTREONAM LYSINE
     Indication: Pneumonia pseudomonal
  6. HUMULIN N [Concomitant]
     Active Substance: INSULIN HUMAN
  7. ATORVASTATIN [Concomitant]
     Active Substance: ATORVASTATIN
  8. CYANOCOBALAMIN [Concomitant]
     Active Substance: CYANOCOBALAMIN
  9. ASPIRIN [Concomitant]
     Active Substance: ASPIRIN
  10. LOSARTAN [Concomitant]
     Active Substance: LOSARTAN
  11. TYLENOL [Concomitant]
     Active Substance: ACETAMINOPHEN
  12. GLIPIZIDE [Concomitant]
     Active Substance: GLIPIZIDE
  13. STRIVERDI RESPIMAT [Concomitant]
     Active Substance: OLODATEROL HYDROCHLORIDE
  14. ALPROSTADIL [Concomitant]
     Active Substance: ALPROSTADIL
  15. AZITHROMYCIN [Concomitant]
     Active Substance: AZITHROMYCIN
  16. FLAXSEED [Concomitant]
     Active Substance: FLAX SEED
  17. LORATADINE [Concomitant]
     Active Substance: LORATADINE
  18. BENZONATATE [Concomitant]
     Active Substance: BENZONATATE
  19. GLUCOSAMINE [Concomitant]
     Active Substance: GLUCOSAMINE
  20. OXYMETAZOLINE HYDROCHLORIDE [Concomitant]
     Active Substance: OXYMETAZOLINE HYDROCHLORIDE
  21. CALCIUM CARBONATE [Concomitant]
     Active Substance: CALCIUM CARBONATE
  22. CULTURELLE [Concomitant]
     Active Substance: LACTOBACILLUS RHAMNOSUS
  23. POTASSIUM GLUCONATE [Concomitant]
     Active Substance: POTASSIUM GLUCONATE
  24. OMEPRAZOLE [Concomitant]
     Active Substance: OMEPRAZOLE
  25. MUCINEX [Concomitant]
     Active Substance: GUAIFENESIN
  26. FUROSEMIDE [Concomitant]
     Active Substance: FUROSEMIDE
  27. PROBIOTICS NOS [Concomitant]
     Active Substance: PROBIOTICS NOS
  28. ALPHA LIPOIC ACID [Concomitant]
     Active Substance: .ALPHA.-LIPOIC ACID
  29. ALBUTEROL SULFATE [Concomitant]
     Active Substance: ALBUTEROL SULFATE
  30. FISH OIL [Concomitant]
     Active Substance: FISH OIL

REACTIONS (3)
  - Influenza [Unknown]
  - Pneumonia [Not Recovered/Not Resolved]
  - Off label use [Unknown]
